FAERS Safety Report 5449109-4 (Version None)
Quarter: 2007Q3

REPORT INFORMATION
  Report Type: 
  Country: None (occurrence: None)
  Receive Date: 20070911
  Receipt Date: 20070905
  Transmission Date: 20080115
  Serious: Yes (Hospitalization, Other)
  Sender: FDA-Public Use
  Company Number: FR-ELI_LILLY_AND_COMPANY-FR200706003430

PATIENT
  Age: 57 Year
  Sex: Female
  Weight: 54 kg

DRUGS (5)
  1. GEMZAR [Suspect]
     Indication: BILE DUCT CANCER
     Dosage: UNK, UNKNOWN
     Route: 042
     Dates: start: 20060912
  2. ELOXATIN [Concomitant]
     Indication: BILE DUCT CANCER
     Dosage: UNK, UNKNOWN
     Route: 042
     Dates: start: 20060912, end: 20070101
  3. ACETAMINOPHEN [Concomitant]
     Dosage: 1 D/F, 2/D
     Route: 048
  4. SILOMAT [Concomitant]
     Dosage: UNK, UNKNOWN
     Route: 048
  5. ATARAX [Concomitant]
     Dosage: 25 MG, DAILY (1/D)
     Route: 048

REACTIONS (4)
  - COUGH [None]
  - NASOPHARYNGITIS [None]
  - PERTUSSIS [None]
  - PNEUMOCYSTIS JIROVECI PNEUMONIA [None]
